FAERS Safety Report 5485815-3 (Version None)
Quarter: 2007Q4

REPORT INFORMATION
  Report Type: 
  Country: None (occurrence: None)
  Receive Date: 20071015
  Receipt Date: 20071001
  Transmission Date: 20080405
  Serious: Yes (Other)
  Sender: FDA-Public Use
  Company Number: PHBS2007TR16296

PATIENT
  Age: 10 Year
  Sex: Female

DRUGS (5)
  1. IMIPRAMINE [Suspect]
     Indication: DEPRESSION
     Dosage: 25 MG/D
     Route: 065
  2. METHYLPHENIDATE HCL [Suspect]
     Indication: ATTENTION DEFICIT/HYPERACTIVITY DISORDER
     Dosage: 15 MG/D
     Route: 065
  3. METHYLPHENIDATE HCL [Suspect]
     Dosage: 10 MG, TID
     Route: 065
  4. VALPROIC ACID [Suspect]
     Indication: BIPOLAR DISORDER
     Dosage: 10 MG/KG/D
     Route: 065
  5. VALPROIC ACID [Suspect]
     Dosage: 20 MG/KG/D DIVIDED INTO 3 X DAILY
     Route: 065

REACTIONS (3)
  - EYE PAIN [None]
  - GAZE PALSY [None]
  - OCULOGYRIC CRISIS [None]
